FAERS Safety Report 4975529-8 (Version None)
Quarter: 2006Q2

REPORT INFORMATION
  Report Type: 
  Country: None (occurrence: None)
  Receive Date: 20060418
  Receipt Date: 20060411
  Transmission Date: 20061013
  Serious: Yes (Hospitalization)
  Sender: FDA-Public Use
  Company Number: US-ROCHE-444226

PATIENT
  Sex: Male

DRUGS (1)
  1. XENICAL [Suspect]
     Route: 048

REACTIONS (2)
  - GASTROINTESTINAL DISORDER [None]
  - INTESTINAL FUNCTIONAL DISORDER [None]
